FAERS Safety Report 11199415 (Version 1)
Quarter: 2015Q2

REPORT INFORMATION
  Report Type: Spontaneous
  Country: IT (occurrence: None)
  Receive Date: 20150616
  Receipt Date: 20150616
  Transmission Date: 20150821
  Serious: Yes (Other)
  Sender: FDA-Public Use
  Company Number: 1502ITA006638

PATIENT
  Age: 23 Year
  Sex: Female

DRUGS (1)
  1. ISOCEF (CEFTIBUTEN) CAPSULE, 400MG [Suspect]
     Active Substance: CEFTIBUTEN
     Indication: COUGH
     Route: 048
     Dates: start: 20141015, end: 20141023

REACTIONS (3)
  - Pruritus [None]
  - Drug eruption [None]
  - Oedema [None]

NARRATIVE: CASE EVENT DATE: 20141020
